FAERS Safety Report 17686050 (Version 1)
Quarter: 2020Q2

REPORT INFORMATION
  Report Type: Spontaneous
  Country: US (occurrence: US)
  Receive Date: 20200417
  Receipt Date: 20200417
  Transmission Date: 20200714
  Serious: Yes (Hospitalization)
  Sender: FDA-Public Use
  Company Number: None

PATIENT
  Age: 70 Year
  Sex: Male
  Weight: 95 kg

DRUGS (2)
  1. ASPIRIN (ASPIRIN 325MG TAB) [Suspect]
     Active Substance: ASPIRIN
     Indication: SURGERY
     Route: 048
     Dates: start: 20160922
  2. RIVAROXABAN (RIVAROXABAN 20MG TAB ) [Suspect]
     Active Substance: RIVAROXABAN
     Indication: ATRIAL FIBRILLATION
     Route: 048
     Dates: start: 20170412, end: 20191004

REACTIONS (5)
  - Fall [None]
  - Dyspnoea [None]
  - Dizziness [None]
  - Asthenia [None]
  - Gastric ulcer haemorrhage [None]

NARRATIVE: CASE EVENT DATE: 20191004
